FAERS Safety Report 10090575 (Version 1)
Quarter: 2014Q2

REPORT INFORMATION
  Report Type: Spontaneous
  Country: US (occurrence: None)
  Receive Date: 20140417
  Receipt Date: 20140417
  Transmission Date: 20141212
  Serious: Yes (Hospitalization)
  Sender: FDA-Public Use
  Company Number: UTC-045939

PATIENT
  Age: 65 Year
  Sex: Female
  Weight: 79.37 kg

DRUGS (3)
  1. REMODULIN (2.5 MILLIGRAM/ MILLILITERS, INJECTION FOR INFUSION) (TREPROSTINIL SODIUM) [Suspect]
     Indication: PULMONARY ARTERIAL HYPERTENSION
     Dosage: 69.12 UG/KG (0.048 UG/KG, 1 IN 1 MIN)
     Route: 041
     Dates: start: 20130509
  2. REVATIO (SILDENAFIL CITRATE) [Concomitant]
  3. WARFARIN (WARFARIN) [Concomitant]

REACTIONS (4)
  - Oedema peripheral [None]
  - Weight increased [None]
  - Cellulitis [None]
  - Device alarm issue [None]
